FAERS Safety Report 6822661-X (Version None)
Quarter: 2010Q2

REPORT INFORMATION
  Report Type: 
  Country: None (occurrence: None)
  Receive Date: 20100319
  Receipt Date: 20100319
  Transmission Date: 20101027
  Serious: Yes (Other)
  Sender: FDA-Public Use
  Company Number: None

PATIENT
  Age: 30 Year
  Sex: Female
  Weight: 50.3493 kg

DRUGS (1)
  1. PARAGARD T 380A [Suspect]
     Indication: CONTRACEPTION
     Dates: start: 20091225, end: 20100316

REACTIONS (6)
  - BLOOD URINE PRESENT [None]
  - DYSPAREUNIA [None]
  - PELVIC PAIN [None]
  - PYURIA [None]
  - URINARY TRACT INFECTION [None]
  - VAGINAL DISCHARGE [None]
